FAERS Safety Report 7408650-5 (Version None)
Quarter: 2011Q2

REPORT INFORMATION
  Report Type: 
  Country: None (occurrence: None)
  Receive Date: 20110412
  Receipt Date: 20110401
  Transmission Date: 20111010
  Serious: Yes (Other)
  Sender: FDA-Public Use
  Company Number: PHFR2011GB02005

PATIENT
  Sex: Male
  Weight: 82.55 kg

DRUGS (5)
  1. SULPIRIDE [Concomitant]
     Indication: PSYCHOTIC DISORDER
     Dosage: 200 MG, BID
  2. HYOSCINE [Concomitant]
     Indication: SALIVARY HYPERSECRETION
     Dosage: 30 UG, QD
     Route: 048
  3. PRAVASTATIN [Concomitant]
     Indication: BLOOD CHOLESTEROL INCREASED
     Dosage: 20 MG, QD
  4. CLOZARIL [Suspect]
     Indication: PSYCHOTIC DISORDER
     Dosage: 425 MG, QD
     Route: 048
     Dates: start: 20010701
  5. PAROXETINE [Concomitant]
     Indication: DEPRESSION
     Dosage: 20 MG, QD
     Route: 048

REACTIONS (3)
  - URINARY TRACT INFECTION [None]
  - NEUTROPHIL COUNT INCREASED [None]
  - WHITE BLOOD CELL COUNT INCREASED [None]
